FAERS Safety Report 16816211 (Version 1)
Quarter: 2019Q3

REPORT INFORMATION
  Report Type: Spontaneous
  Country: US (occurrence: US)
  Receive Date: 20190917
  Receipt Date: 20190917
  Transmission Date: 20191005
  Serious: No
  Sender: FDA-Public Use
  Company Number: US-RECKITT BENCKISER HEALTHCARE INT LIMITED-RB-89744-2018

PATIENT
  Age: 81 Year
  Sex: Female

DRUGS (2)
  1. MUCINEX [Suspect]
     Active Substance: GUAIFENESIN
     Indication: PRODUCT USED FOR UNKNOWN INDICATION
     Dosage: 600 MG, BID (TOOK FOR ABOUT A WEEK AND A HALF)
     Route: 065
     Dates: start: 201807, end: 201807
  2. MUCINEX MAXIMUM STRENGTH [Suspect]
     Active Substance: GUAIFENESIN
     Indication: PRODUCT USED FOR UNKNOWN INDICATION
     Dosage: 1200 MG, BID (TOOK FOR 5 DAYS CONSECUTIVELY)
     Route: 065
     Dates: start: 201807, end: 2018

REACTIONS (2)
  - Incorrect product administration duration [Recovered/Resolved]
  - Drug ineffective [Recovered/Resolved]
